FAERS Safety Report 6980206-8 (Version None)
Quarter: 2010Q3

REPORT INFORMATION
  Report Type: 
  Country: None (occurrence: None)
  Receive Date: 20100914
  Receipt Date: 20100909
  Transmission Date: 20110219
  Serious: No
  Sender: FDA-Public Use
  Company Number: US-JNJFOC-20100508067

PATIENT
  Age: 4 Month
  Sex: Female
  Weight: 9.07 kg

DRUGS (3)
  1. CONCENTRATED TYLENOL INFANT DROPS [Suspect]
     Route: 048
  2. CONCENTRATED TYLENOL INFANT DROPS [Suspect]
     Indication: TEETHING
     Dosage: .04 DROPPER EVERY 4 HOURS
     Route: 048
  3. IRON SUPPLEMENT [Concomitant]
     Indication: MINERAL SUPPLEMENTATION
     Dosage: .04 DROPPER A DAY
     Route: 065

REACTIONS (3)
  - ECZEMA [None]
  - PRODUCT QUALITY ISSUE [None]
  - VIRAL SKIN INFECTION [None]
